FAERS Safety Report 13023012 (Version 4)
Quarter: 2017Q1

REPORT INFORMATION
  Report Type: Report from Study
  Country: BR (occurrence: BR)
  Receive Date: 20161213
  Receipt Date: 20170227
  Transmission Date: 20170428
  Serious: Yes (Other)
  Sender: FDA-Public Use
  Company Number: BR-JNJFOC-20160919383

PATIENT
  Sex: Female
  Weight: 66 kg

DRUGS (9)
  1. FOLIC ACID. [Concomitant]
     Active Substance: FOLIC ACID
     Route: 065
  2. METHOTREXATE. [Concomitant]
     Active Substance: METHOTREXATE
     Route: 065
  3. CEBRILIN [Concomitant]
     Active Substance: PAROXETINE HYDROCHLORIDE
     Route: 065
  4. VITAMIN D [Concomitant]
     Active Substance: CHOLECALCIFEROL
     Route: 065
  5. STELARA [Suspect]
     Active Substance: USTEKINUMAB
     Indication: PSORIASIS
     Route: 058
     Dates: start: 20150325
  6. ATENOLOL. [Concomitant]
     Active Substance: ATENOLOL
     Route: 065
  7. ARTRODAR [Concomitant]
     Active Substance: DIACEREIN
     Route: 065
  8. STELARA [Suspect]
     Active Substance: USTEKINUMAB
     Indication: PSORIASIS
     Route: 058
     Dates: start: 20140325
  9. DEPURA [Concomitant]
     Active Substance: CHOLECALCIFEROL
     Route: 065

REACTIONS (17)
  - Feeling hot [Unknown]
  - Abdominal distension [Unknown]
  - Skin odour abnormal [Recovered/Resolved]
  - Drug ineffective [Unknown]
  - Candida infection [Not Recovered/Not Resolved]
  - Psoriasis [Not Recovered/Not Resolved]
  - Diarrhoea [Unknown]
  - Joint swelling [Unknown]
  - Peripheral swelling [Unknown]
  - Migraine [Unknown]
  - Nausea [Unknown]
  - Rhinitis [Unknown]
  - Menorrhagia [Unknown]
  - Vaginal disorder [Unknown]
  - Pain in extremity [Unknown]
  - Anaemia [Unknown]
  - Dyspepsia [Unknown]

NARRATIVE: CASE EVENT DATE: 2016
